FAERS Safety Report 21937088 (Version 1)
Quarter: 2023Q1

REPORT INFORMATION
  Report Type: Spontaneous
  Country: CA (occurrence: None)
  Receive Date: 20230131
  Receipt Date: 20230131
  Transmission Date: 20230417
  Serious: Yes (Other)
  Sender: FDA-Public Use
  Company Number: None

PATIENT
  Age: 46 Year
  Sex: Female
  Weight: 67.5 kg

DRUGS (2)
  1. SUBLOCADE [Suspect]
     Active Substance: BUPRENORPHINE
     Indication: Drug use disorder
     Dosage: OTHER FREQUENCY : ONCE A MONTH;?
     Route: 058
     Dates: start: 20221227
  2. SUBLOCADE [Suspect]
     Active Substance: BUPRENORPHINE
     Indication: Dependence

REACTIONS (3)
  - Urticaria [None]
  - Injection site urticaria [None]
  - Pruritus [None]

NARRATIVE: CASE EVENT DATE: 20230127
